FAERS Safety Report 9342285 (Version 1)
Quarter: 2013Q2

REPORT INFORMATION
  Report Type: Spontaneous
  Country: KR (occurrence: None)
  Receive Date: 20130607
  Receipt Date: 20130607
  Transmission Date: 20140414
  Serious: Yes (Hospitalization, Other)
  Sender: FDA-Public Use
  Company Number: IPC201305-000213

PATIENT
  Age: 62 Year
  Sex: Male

DRUGS (7)
  1. METFORMIN HYDROCHLORIDE [Suspect]
  2. AMLODIPINE BESILATE [Concomitant]
  3. VALSARTAN (VALSARTAN) (VALSARTAN) [Concomitant]
  4. CALCIUM CARBONATE (CALCIUM CARBONATE) (CALCIUM CARBONATE) [Concomitant]
  5. VITAMIN B COMPLEX (VITAMIN B) (VITAMIN B) [Concomitant]
  6. VITAMIN C COMPLEX (VITAMIN C) (VITAMIN C) [Concomitant]
  7. GLICLAZIDE (GLICLAZIDE) (GLICLAZIDE) [Concomitant]

REACTIONS (10)
  - Encephalopathy [None]
  - Anaemia [None]
  - Decreased appetite [None]
  - Dysarthria [None]
  - Abdominal discomfort [None]
  - Blood pressure increased [None]
  - Asthenia [None]
  - Haemodialysis [None]
  - Gait disturbance [None]
  - Myoclonus [None]
